FAERS Safety Report 7435834-2 (Version None)
Quarter: 2011Q2

REPORT INFORMATION
  Report Type: 
  Country: None (occurrence: None)
  Receive Date: 20110425
  Receipt Date: 20110413
  Transmission Date: 20111010
  Serious: Yes (Other)
  Sender: FDA-Public Use
  Company Number: US-ELI_LILLY_AND_COMPANY-US201104004556

PATIENT
  Sex: Female
  Weight: 63.039 kg

DRUGS (6)
  1. DEPAKOTE [Concomitant]
     Dosage: 250 MG, EACH MORNING
  2. DEPAKOTE [Concomitant]
     Dosage: 500 MG, EACH EVENING
  3. AMANTADINE HCL [Concomitant]
     Dosage: 100 MG, BID
  4. TRILEPTAL [Concomitant]
     Dosage: 300 MG, UNK
  5. ZYPREXA [Suspect]
     Dosage: 25 MG, EACH EVENING
     Dates: start: 20110410
  6. ZYPREXA RELPREVV [Suspect]
     Dosage: 300 MG, UNKNOWN
     Dates: start: 20110411

REACTIONS (5)
  - OVERDOSE [None]
  - VISION BLURRED [None]
  - DIZZINESS [None]
  - HYPOTENSION [None]
  - DIPLOPIA [None]
